FAERS Safety Report 10058684 (Version 1)
Quarter: 2014Q2

REPORT INFORMATION
  Report Type: Spontaneous
  Country: US (occurrence: US)
  Receive Date: 20140404
  Receipt Date: 20140404
  Transmission Date: 20141212
  Serious: Yes (Other)
  Sender: FDA-Public Use
  Company Number: US-JNJFOC-20140401008

PATIENT
  Age: 73 Year
  Sex: Female

DRUGS (4)
  1. INVOKANA [Suspect]
     Indication: TYPE 2 DIABETES MELLITUS
     Route: 048
  2. METFORMIN [Concomitant]
     Indication: TYPE 2 DIABETES MELLITUS
  3. LISINOPRIL [Concomitant]
  4. AMBIEN [Concomitant]

REACTIONS (3)
  - Lip swelling [Unknown]
  - Dyspnoea [Unknown]
  - Hypersensitivity [Unknown]
